FAERS Safety Report 25597288 (Version 2)
Quarter: 2025Q3

REPORT INFORMATION
  Report Type: Spontaneous
  Country: US (occurrence: US)
  Receive Date: 20250723
  Receipt Date: 20250912
  Transmission Date: 20251021
  Serious: No
  Sender: AMGEN
  Company Number: US-AMGEN-USASP2025141090

PATIENT
  Age: 38 Year
  Sex: Female

DRUGS (49)
  1. AVSOLA [Suspect]
     Active Substance: INFLIXIMAB-AXXQ
     Indication: Skin disorder
     Route: 065
     Dates: start: 20240201
  2. TEZSPIRE [Suspect]
     Active Substance: TEZEPELUMAB-EKKO
     Indication: Product used for unknown indication
     Route: 065
     Dates: start: 202505
  3. ALPRAZOLAM [Concomitant]
     Active Substance: ALPRAZOLAM
  4. ATORVASTATIN [Concomitant]
     Active Substance: ATORVASTATIN
  5. BUTALBITAL, ACETAMINOPHEN, AND CAFFEINE [Concomitant]
     Active Substance: ACETAMINOPHEN\BUTALBITAL\CAFFEINE
     Indication: Migraine
  6. BUTALBITAL, ACETAMINOPHEN, AND CAFFEINE [Concomitant]
     Active Substance: ACETAMINOPHEN\BUTALBITAL\CAFFEINE
  7. CAFFEINE [Concomitant]
     Active Substance: CAFFEINE
     Indication: Migraine
  8. CODEINE [Concomitant]
     Active Substance: CODEINE
     Indication: Product used for unknown indication
  9. CYCLOBENZAPRINE [Concomitant]
     Active Substance: CYCLOBENZAPRINE
     Indication: Product used for unknown indication
  10. CYCLOBENZAPRINE [Concomitant]
     Active Substance: CYCLOBENZAPRINE
  11. DIAZEPAM [Concomitant]
     Active Substance: DIAZEPAM
     Indication: Product used for unknown indication
  12. DIAZEPAM [Concomitant]
     Active Substance: DIAZEPAM
  13. DOCUSATE SODIUM [Concomitant]
     Active Substance: DOCUSATE SODIUM
     Indication: Product used for unknown indication
  14. DOXYCYCLINE HYCLATE [Concomitant]
     Active Substance: DOXYCYCLINE HYCLATE
     Indication: Product used for unknown indication
  15. ESCITALOPRAM [Concomitant]
     Active Substance: ESCITALOPRAM OXALATE
     Indication: Product used for unknown indication
  16. ESCITALOPRAM [Concomitant]
     Active Substance: ESCITALOPRAM OXALATE
  17. GLYCOPYRROLATE [Concomitant]
     Active Substance: GLYCOPYRROLATE
     Indication: Product used for unknown indication
  18. HYDROCODONE BITARTRATE AND ACETAMINOPHEN [Concomitant]
     Active Substance: ACETAMINOPHEN\HYDROCODONE BITARTRATE
  19. HYDROCODONE BITARTRATE AND ACETAMINOPHEN [Concomitant]
     Active Substance: ACETAMINOPHEN\HYDROCODONE BITARTRATE
  20. IPRATROPIUM BROMIDE [Concomitant]
     Active Substance: IPRATROPIUM BROMIDE
     Indication: Product used for unknown indication
     Route: 045
  21. LORATADINE [Concomitant]
     Active Substance: LORATADINE
     Indication: Product used for unknown indication
  22. LOSARTAN [Concomitant]
     Active Substance: LOSARTAN
     Indication: Product used for unknown indication
  23. LURASIDONE [Concomitant]
     Active Substance: LURASIDONE
  24. METFORMIN [Concomitant]
     Active Substance: METFORMIN HYDROCHLORIDE
  25. MIRTAZAPINE [Concomitant]
     Active Substance: MIRTAZAPINE
  26. MONTELUKAST [Concomitant]
     Active Substance: MONTELUKAST
  27. NAPROXEN [Concomitant]
     Active Substance: NAPROXEN
  28. OXYCODONE [Concomitant]
     Active Substance: OXYCODONE
  29. PAROXETINE [Concomitant]
     Active Substance: PAROXETINE
  30. PREGABALIN [Concomitant]
     Active Substance: PREGABALIN
  31. PREGABALIN [Concomitant]
     Active Substance: PREGABALIN
  32. SUCRALFATE [Concomitant]
     Active Substance: SUCRALFATE
  33. TIZANIDINE [Concomitant]
     Active Substance: TIZANIDINE
  34. ZOFRAN [Concomitant]
     Active Substance: ONDANSETRON HYDROCHLORIDE
  35. ACETAMINOPHEN [Concomitant]
     Active Substance: ACETAMINOPHEN
  36. BENZONATATE [Concomitant]
     Active Substance: BENZONATATE
  37. BREZTRI [Concomitant]
     Active Substance: BUDESONIDE\FORMOTEROL\GLYCOPYRROLATE
  38. BREZTRI [Concomitant]
     Active Substance: BUDESONIDE\FORMOTEROL\GLYCOPYRROLATE
  39. BREZTRI [Concomitant]
     Active Substance: BUDESONIDE\FORMOTEROL\GLYCOPYRROLATE
  40. EMGALITY [Concomitant]
     Active Substance: GALCANEZUMAB-GNLM
  41. ALBUTEROL SULFATE [Concomitant]
     Active Substance: ALBUTEROL SULFATE
  42. ALBUTEROL SULFATE [Concomitant]
     Active Substance: ALBUTEROL SULFATE
  43. INSULIN NOS [Concomitant]
     Active Substance: INSULIN NOS
     Route: 058
  44. EPINEPHRINE [Concomitant]
     Active Substance: EPINEPHRINE
  45. MOUNJARO [Concomitant]
     Active Substance: TIRZEPATIDE
     Route: 058
  46. MOUNJARO [Concomitant]
     Active Substance: TIRZEPATIDE
     Route: 058
  47. MOUNJARO [Concomitant]
     Active Substance: TIRZEPATIDE
     Route: 058
  48. MOUNJARO [Concomitant]
     Active Substance: TIRZEPATIDE
     Route: 058
  49. NOVOLOG [Concomitant]
     Active Substance: INSULIN ASPART

REACTIONS (3)
  - Off label use [Unknown]
  - Surgery [Unknown]
  - Dyspnoea [Unknown]

NARRATIVE: CASE EVENT DATE: 20250507
